FAERS Safety Report 19264721 (Version 1)
Quarter: 2021Q2

REPORT INFORMATION
  Report Type: Spontaneous
  Country: US (occurrence: US)
  Receive Date: 20210517
  Receipt Date: 20210517
  Transmission Date: 20210717
  Serious: Yes (Hospitalization)
  Sender: FDA-Public Use
  Company Number: None

PATIENT
  Age: 69 Year
  Sex: Female
  Weight: 63 kg

DRUGS (8)
  1. LYSINE PRE?NATAL VITAMIN SLOW?RELASE IRON [Concomitant]
  2. HYOCYAMINE [Concomitant]
  3. PROPRANOLOL [Concomitant]
     Active Substance: PROPRANOLOL HYDROCHLORIDE
  4. ONDANSETRON [Concomitant]
     Active Substance: ONDANSETRON
  5. OXYCODONE 10 MG TABLET [Suspect]
     Active Substance: OXYCODONE
     Indication: PAIN
     Route: 048
  6. VALUIM VAGINAL SUPPOSITORIES [Concomitant]
  7. PACEMAKER [Concomitant]
     Active Substance: DEVICE
  8. OXYCODONE [Concomitant]
     Active Substance: OXYCODONE

REACTIONS (14)
  - Vision blurred [None]
  - Arthralgia [None]
  - Product contamination [None]
  - Dyspnoea [None]
  - Chest pain [None]
  - Myalgia [None]
  - Dysphonia [None]
  - Hyperhidrosis [None]
  - Dysphagia [None]
  - Inadequate analgesia [None]
  - Seizure [None]
  - Rhinorrhoea [None]
  - Abdominal pain [None]
  - Product quality issue [None]

NARRATIVE: CASE EVENT DATE: 20210516
